FAERS Safety Report 25604663 (Version 1)
Quarter: 2025Q3

REPORT INFORMATION
  Report Type: Spontaneous
  Country: US (occurrence: US)
  Receive Date: 20250725
  Receipt Date: 20250725
  Transmission Date: 20251021
  Serious: No
  Sender: GLAXOSMITHKLINE
  Company Number: US-GSK-US2025083079

PATIENT
  Sex: Female

DRUGS (2)
  1. ZEJULA [Suspect]
     Active Substance: NIRAPARIB
     Indication: Neoplasm malignant
     Dosage: 100 MG,1 100MG TABLET BY MOUTH DAILY WITH OR WITHOUT FOOD AT THE SAME TIME EACH DAY
  2. ERYTHROMYCIN [Suspect]
     Active Substance: ERYTHROMYCIN
     Indication: Upper respiratory tract infection

REACTIONS (2)
  - Upper respiratory tract infection [Not Recovered/Not Resolved]
  - Product use issue [Unknown]
